FAERS Safety Report 9837374 (Version 1)
Quarter: 2014Q1

REPORT INFORMATION
  Report Type: Spontaneous
  Country: US (occurrence: US)
  Receive Date: 20140123
  Receipt Date: 20140123
  Transmission Date: 20141002
  Serious: Yes (Other)
  Sender: FDA-Public Use
  Company Number: US-PFIZER INC-2014017289

PATIENT
  Sex: Male

DRUGS (3)
  1. VIAGRA [Suspect]
     Indication: ERECTILE DYSFUNCTION
     Dosage: 5 MG, AS NEEDED
     Route: 048
     Dates: start: 2013
  2. VIAGRA [Suspect]
     Dosage: (ONE AND A HALF TABLET, BY SPLITTING THE TABLETS INTO HALF), AS NEEDED
     Route: 048
  3. VIAGRA [Suspect]
     Dosage: 10 MG, UNK
     Route: 048

REACTIONS (2)
  - Erection increased [Not Recovered/Not Resolved]
  - Drug ineffective [Unknown]
